FAERS Safety Report 8389269-9 (Version None)
Quarter: 2012Q2

REPORT INFORMATION
  Report Type: 
  Country: None (occurrence: None)
  Receive Date: 20120528
  Receipt Date: 20120521
  Transmission Date: 20120825
  Serious: Yes (Hospitalization)
  Sender: FDA-Public Use
  Company Number: PHHY2010AU48614

PATIENT
  Sex: Male

DRUGS (4)
  1. CLOZARIL [Suspect]
     Dosage: 750 MG, (350 MG MANE AND 400MG NOCTE)
     Route: 048
     Dates: start: 20090101
  2. ARIPIPRAZOLE [Concomitant]
     Indication: MAMMOPLASTY
     Dosage: 30 MG, QD
     Route: 048
  3. VALPROATE SODIUM [Concomitant]
     Dosage: 500 MG, UNK
  4. CLOZARIL [Suspect]
     Dosage: 400 MG, UNK
     Route: 048
     Dates: start: 20070412

REACTIONS (8)
  - STRESS [None]
  - WRONG TECHNIQUE IN DRUG USAGE PROCESS [None]
  - MENTAL DISORDER [None]
  - GAMMA-GLUTAMYLTRANSFERASE INCREASED [None]
  - AGITATION [None]
  - ANXIETY [None]
  - SCHIZOPHRENIA [None]
  - MENTAL IMPAIRMENT [None]
